FAERS Safety Report 4483828-1 (Version None)
Quarter: 2004Q4

REPORT INFORMATION
  Report Type: 
  Country: None (occurrence: None)
  Receive Date: 20041025
  Receipt Date: 20041013
  Transmission Date: 20050328
  Serious: Yes (Hospitalization)
  Sender: FDA-Public Use
  Company Number: FR-BRISTOL-MYERS SQUIBB COMPANY-12731162

PATIENT
  Age: 60 Year
  Sex: Male

DRUGS (10)
  1. FUNGIZONE [Suspect]
     Route: 048
     Dates: start: 20040913
  2. CEFOTAXIME SODIUM [Suspect]
     Indication: INFECTION
     Dosage: ^4/D^
     Route: 042
     Dates: start: 20040903, end: 20040913
  3. LOVENOX [Suspect]
     Indication: HIP SURGERY
     Dosage: ^1/D^
     Route: 058
     Dates: start: 20040903
  4. FOSFOCIN [Suspect]
     Indication: INFECTION
     Route: 042
     Dates: start: 20040903, end: 20040913
  5. GLUCOR [Concomitant]
     Dosage: ^3/D^
  6. GLICLAZIDE [Concomitant]
     Dosage: ^3/D^
  7. LEGALON [Concomitant]
     Dosage: ^3/D^
  8. ZYRTEC [Concomitant]
     Dosage: ^1/D^
  9. PARACETAMOL [Concomitant]
     Dosage: ^6/D^
  10. TARDYFERON B9 [Concomitant]
     Dosage: ^2/D^

REACTIONS (8)
  - ABDOMINAL DISTENSION [None]
  - CARDIAC MURMUR [None]
  - DYSPHAGIA [None]
  - DYSPNOEA [None]
  - ERYTHEMA [None]
  - OEDEMA [None]
  - OEDEMA PERIPHERAL [None]
  - WHEEZING [None]
